FAERS Safety Report 6756730-X (Version None)
Quarter: 2010Q2

REPORT INFORMATION
  Report Type: 
  Country: None (occurrence: None)
  Receive Date: 20100604
  Receipt Date: 20100601
  Transmission Date: 20101027
  Serious: Yes (Life-Threatening)
  Sender: FDA-Public Use
  Company Number: FR-BRISTOL-MYERS SQUIBB COMPANY-15129885

PATIENT
  Age: 89 Year
  Sex: Female

DRUGS (5)
  1. APROVEL TABS 300 MG [Suspect]
     Indication: HYPERTENSION
     Route: 048
  2. ALDACTONE [Suspect]
     Indication: HYPERTENSION
     Route: 048
  3. LERCAN [Concomitant]
     Indication: HYPERTENSION
     Dosage: TABLET
  4. HYPERIUM [Concomitant]
     Indication: HYPERTENSION
     Dosage: TABLET
  5. NEO-MERCAZOLE TAB [Concomitant]
     Indication: HYPERTHYROIDISM

REACTIONS (3)
  - ARRHYTHMIA [None]
  - HYPERKALAEMIA [None]
  - RENAL FAILURE [None]
